FAERS Safety Report 25670673 (Version 1)
Quarter: 2025Q3

REPORT INFORMATION
  Report Type: Spontaneous
  Country: EU (occurrence: EU)
  Receive Date: 20250812
  Receipt Date: 20250812
  Transmission Date: 20251021
  Serious: Yes (Hospitalization, Other)
  Sender: Haleon PLC
  Company Number: None

PATIENT
  Age: 34 Year
  Sex: Male
  Weight: 62 kg

DRUGS (29)
  1. ESOMEPRAZOLE [Suspect]
     Active Substance: ESOMEPRAZOLE
     Indication: Product used for unknown indication
  2. HYDROCORTISONE [Suspect]
     Active Substance: HYDROCORTISONE
     Indication: Prophylaxis against transplant rejection
     Dosage: 20 MG/DAY
  3. AZITHROMYCIN [Interacting]
     Active Substance: AZITHROMYCIN
     Indication: Bronchiolitis
     Dosage: 250 MG/DAY
  4. CYCLOSPORINE [Suspect]
     Active Substance: CYCLOSPORINE
     Indication: Lung transplant
  5. CYCLOSPORINE [Suspect]
     Active Substance: CYCLOSPORINE
     Indication: Prophylaxis against transplant rejection
     Dosage: 170MG TWICE DAILY
  6. COLCHICINE [Suspect]
     Active Substance: COLCHICINE
     Indication: Gout
     Dosage: 1 MG, 1X/DAY
     Dates: start: 20091023, end: 20091028
  7. COLCHICINE [Suspect]
     Active Substance: COLCHICINE
     Indication: Gouty arthritis
     Dates: start: 20091020
  8. COLCHICINE [Suspect]
     Active Substance: COLCHICINE
     Dosage: 1 MG, BID
     Dates: start: 20091021, end: 20091022
  9. COLCHICINE [Suspect]
     Active Substance: COLCHICINE
     Dosage: 1MG BID FOR 2 AND 3RAY; 1MG/D FOR 6DAYS
     Dates: start: 20091020, end: 20091020
  10. COLCHICINE [Suspect]
     Active Substance: COLCHICINE
     Dosage: 1 MG, QD
     Dates: start: 20091023, end: 20091028
  11. FERROUS ASCORBATE [Concomitant]
     Active Substance: FERROUS ASCORBATE
     Indication: Product used for unknown indication
     Dosage: 66 MG/DAY
  12. PANCREATIN [Concomitant]
     Active Substance: PANCRELIPASE
     Indication: Product used for unknown indication
     Dosage: 250000 IU/DAY
  13. COTRIMOXAZOLE [Suspect]
     Active Substance: SULFAMETHOXAZOLE\TRIMETHOPRIM
     Indication: Product used for unknown indication
     Dosage: 400/80MG TABLETS 3TIMES WEEKLY
     Route: 048
  14. COTRIMOXAZOLE [Suspect]
     Active Substance: SULFAMETHOXAZOLE\TRIMETHOPRIM
  15. CALCIUM [Concomitant]
     Active Substance: CALCIUM
     Indication: Product used for unknown indication
     Dosage: 1 G/DAY
  16. NICORANDIL [Suspect]
     Active Substance: NICORANDIL
     Indication: Coronary artery disease
     Dosage: 10 MG/DAY
  17. PRAVASTATIN [Interacting]
     Active Substance: PRAVASTATIN
     Indication: Coronary artery disease
     Dosage: 20 MG/DAY
  18. ALPHA-TOCOPHEROL [Concomitant]
     Active Substance: .ALPHA.-TOCOPHEROL
     Indication: Product used for unknown indication
  19. ALPHA-TOCOPHEROL [Concomitant]
     Active Substance: .ALPHA.-TOCOPHEROL
     Dosage: 500MG DAILY
  20. IRBESARTAN [Suspect]
     Active Substance: IRBESARTAN
     Indication: Coronary artery disease
     Dosage: 150 MG/DAY
  21. EVEROLIMUS [Suspect]
     Active Substance: EVEROLIMUS
     Indication: Product used for unknown indication
     Dosage: 500 MG/DAY
  22. EVEROLIMUS [Suspect]
     Active Substance: EVEROLIMUS
     Indication: Prophylaxis against transplant rejection
     Dosage: 1 MG/DAY
  23. AZITHROMYCIN [Suspect]
     Active Substance: AZITHROMYCIN
     Indication: Lung transplant
  24. ASPIRIN LYSINE [Concomitant]
     Active Substance: ASPIRIN LYSINE
     Indication: Coronary artery disease
  25. ASPIRIN LYSINE [Concomitant]
     Active Substance: ASPIRIN LYSINE
     Dosage: 75 MG/DAY
  26. COLISTIN [Concomitant]
     Active Substance: COLISTIN
     Indication: Product used for unknown indication
  27. CHOLECALCIFEROL [Concomitant]
     Active Substance: CHOLECALCIFEROL
     Indication: Product used for unknown indication
     Dosage: 880 IU/DAY
  28. COLISTIMETHATE SODIUM [Suspect]
     Active Substance: COLISTIMETHATE SODIUM
     Indication: Lung transplant
  29. COLISTIMETHATE SODIUM [Suspect]
     Active Substance: COLISTIMETHATE SODIUM
     Indication: Bronchiolitis
     Dosage: 2 SPRAYERS PER DAY

REACTIONS (18)
  - Cardiac failure [Recovered/Resolved]
  - Pulmonary oedema [Recovered/Resolved]
  - Haemoptysis [Recovering/Resolving]
  - Rhabdomyolysis [Recovered/Resolved]
  - Renal failure [Recovered/Resolved]
  - Cough [Recovering/Resolving]
  - Lymphopenia [Unknown]
  - Acute respiratory failure [Recovering/Resolving]
  - Diarrhoea [Unknown]
  - Multiple organ dysfunction syndrome [Recovering/Resolving]
  - General physical health deterioration [Unknown]
  - Drug level increased [Unknown]
  - Left ventricular failure [Recovering/Resolving]
  - Dyspnoea [Recovering/Resolving]
  - Leukocytosis [Unknown]
  - Drug interaction [Recovered/Resolved]
  - Toxicity to various agents [Recovered/Resolved]
  - Hepatic cytolysis [Recovered/Resolved]

NARRATIVE: CASE EVENT DATE: 20091020
